FAERS Safety Report 9638377 (Version 1)
Quarter: 2013Q4

REPORT INFORMATION
  Report Type: Report from Study
  Country: IN (occurrence: IN)
  Receive Date: 20131022
  Receipt Date: 20131022
  Transmission Date: 20140711
  Serious: Yes (Death)
  Sender: FDA-Public Use
  Company Number: IN-GLAXOSMITHKLINE-B0933045A

PATIENT
  Age: 51 Year
  Sex: Female

DRUGS (1)
  1. VOTRIENT [Suspect]
     Indication: BREAST CANCER METASTATIC
     Dosage: 4TAB PER DAY
     Route: 065

REACTIONS (1)
  - Metastases to central nervous system [Fatal]
